FAERS Safety Report 9350815 (Version 1)
Quarter: 2013Q2

REPORT INFORMATION
  Report Type: Spontaneous
  Country: CN (occurrence: CN)
  Receive Date: 20130617
  Receipt Date: 20130617
  Transmission Date: 20140414
  Serious: Yes (Other)
  Sender: FDA-Public Use
  Company Number: CN-JNJFOC-20130606505

PATIENT
  Age: 0 Year
  Sex: Female

DRUGS (4)
  1. TYLENOL [Suspect]
     Indication: UPPER RESPIRATORY TRACT INFECTION
     Route: 048
     Dates: start: 20111227, end: 20111227
  2. AMOXICILLIN [Concomitant]
     Indication: UPPER RESPIRATORY TRACT INFECTION
     Route: 048
  3. CHINESE MEDICATION [Concomitant]
     Indication: UPPER RESPIRATORY TRACT INFECTION
     Route: 030
  4. CHINESE MEDICATION [Concomitant]
     Indication: UPPER RESPIRATORY TRACT INFECTION
     Route: 048

REACTIONS (3)
  - Hepatic enzyme increased [Unknown]
  - Alanine aminotransferase increased [None]
  - Aspartate aminotransferase increased [None]
